FAERS Safety Report 12691041 (Version 2)
Quarter: 2016Q3

REPORT INFORMATION
  Report Type: Report from Study
  Country: DE (occurrence: DE)
  Receive Date: 20160826
  Receipt Date: 20160909
  Transmission Date: 20161109
  Serious: Yes (Life-Threatening, Hospitalization, Other)
  Sender: FDA-Public Use
  Company Number: DE-BAYER-2016-049098

PATIENT
  Age: 64 Year
  Sex: Female
  Weight: 135 kg

DRUGS (9)
  1. ADEMPAS [Suspect]
     Active Substance: RIOCIGUAT
     Indication: PULMONARY HYPERTENSION
     Dosage: DAILY DOSE 6 MG
     Route: 048
     Dates: start: 201604
  2. AQUAPHOR [Concomitant]
     Active Substance: PETROLATUM
     Indication: URINARY RETENTION
     Dosage: UNK
  3. AQUAPHOR [Concomitant]
     Active Substance: PETROLATUM
     Indication: URINARY RETENTION
     Dosage: UNK
     Dates: start: 20160504
  4. ASPIRIN. [Concomitant]
     Active Substance: ASPIRIN
  5. ADEMPAS [Suspect]
     Active Substance: RIOCIGUAT
     Indication: PULMONARY HYPERTENSION
     Dosage: DAILY DOSE 7.5 MG
     Route: 048
  6. ADEMPAS [Suspect]
     Active Substance: RIOCIGUAT
     Indication: PULMONARY HYPERTENSION
     Dosage: DAILY DOSE 3 MG
     Route: 048
  7. ADEMPAS [Suspect]
     Active Substance: RIOCIGUAT
     Indication: PULMONARY HYPERTENSION
     Dosage: DAILY DOSE 7.5 MG
     Route: 048
     Dates: start: 2016, end: 201608
  8. OXYGEN. [Concomitant]
     Active Substance: OXYGEN
     Dosage: 3 L/MIN
  9. ADEMPAS [Suspect]
     Active Substance: RIOCIGUAT
     Indication: PULMONARY HYPERTENSION
     Dosage: UNK
     Route: 048
     Dates: start: 20160228

REACTIONS (7)
  - Urinary retention [Recovered/Resolved]
  - Tachycardia [Recovered/Resolved with Sequelae]
  - Syncope [Recovered/Resolved]
  - Large intestine polyp [Recovered/Resolved]
  - Syncope [Recovered/Resolved]
  - Fatigue [Recovered/Resolved]
  - Hypercalcaemia [Recovering/Resolving]

NARRATIVE: CASE EVENT DATE: 20160304
